FAERS Safety Report 17419435 (Version 1)
Quarter: 2020Q1

REPORT INFORMATION
  Report Type: Spontaneous
  Country: US (occurrence: US)
  Receive Date: 20200214
  Receipt Date: 20200214
  Transmission Date: 20200409
  Serious: Yes (Death, Hospitalization, Other)
  Sender: FDA-Public Use
  Company Number: US-ASTRAZENECA-2020SE22552

PATIENT
  Age: 60 Year
  Sex: Male

DRUGS (3)
  1. BRILINTA [Suspect]
     Active Substance: TICAGRELOR
     Route: 048
  2. CLOPRIDIGAL [Concomitant]
  3. HERBAL MEDICATION [Concomitant]
     Active Substance: HERBALS

REACTIONS (3)
  - Death [Fatal]
  - Coronary artery occlusion [Unknown]
  - Chest pain [Unknown]
